FAERS Safety Report 7420329-2 (Version None)
Quarter: 2011Q2

REPORT INFORMATION
  Report Type: 
  Country: None (occurrence: None)
  Receive Date: 20110418
  Receipt Date: 20110413
  Transmission Date: 20111010
  Serious: Yes (Other)
  Sender: FDA-Public Use
  Company Number: BR-PFIZER INC-2011080435

PATIENT
  Sex: Female

DRUGS (1)
  1. LYRICA [Suspect]
     Indication: FIBROMYALGIA
     Dosage: 75 MG, UNK
     Route: 048

REACTIONS (10)
  - BRAIN OEDEMA [None]
  - DIZZINESS [None]
  - JOINT SWELLING [None]
  - PRURITUS [None]
  - PAIN [None]
  - DYSPNOEA [None]
  - ERYTHEMA [None]
  - HEAD DISCOMFORT [None]
  - HYPERSENSITIVITY [None]
  - OEDEMA PERIPHERAL [None]
